FAERS Safety Report 6373604-7 (Version None)
Quarter: 2009Q3

REPORT INFORMATION
  Report Type: 
  Country: None (occurrence: None)
  Receive Date: 20090924
  Receipt Date: 20090914
  Transmission Date: 20100115
  Serious: Yes (Death, Hospitalization)
  Sender: FDA-Public Use
  Company Number: FR-PFIZER INC-2009246815

PATIENT
  Age: 57 Year

DRUGS (8)
  1. AMLODIPINE [Suspect]
     Indication: HYPERTENSION
     Dosage: UNK
     Route: 048
     Dates: start: 20090521, end: 20090613
  2. HYDROXYZINE HCL [Suspect]
     Indication: PRURITUS
     Dosage: 25 MG, UNK
     Route: 048
     Dates: end: 20090614
  3. ANASTROZOLE [Concomitant]
     Indication: BREAST CANCER
     Dosage: 1 MG, UNK
  4. LASIX [Concomitant]
     Indication: HYPERTENSION
  5. CARDENSIEL [Concomitant]
     Dosage: 2.5 MG, UNK
     Route: 048
  6. KARDEGIC [Concomitant]
     Dosage: 75 MG, UNK
  7. HUMULIN N [Concomitant]
  8. XYZAL [Concomitant]
     Dosage: 5 MG, UNK

REACTIONS (7)
  - CALCIPHYLAXIS [None]
  - DYSPNOEA [None]
  - GENERALISED OEDEMA [None]
  - HEPATOMEGALY [None]
  - JAUNDICE CHOLESTATIC [None]
  - PSORIASIS [None]
  - SYSTEMIC INFLAMMATORY RESPONSE SYNDROME [None]
